FAERS Safety Report 9758039 (Version 1)
Quarter: 2013Q4

REPORT INFORMATION
  Report Type: Spontaneous
  Country: US (occurrence: US)
  Receive Date: 20131216
  Receipt Date: 20131216
  Transmission Date: 20140711
  Serious: No
  Sender: FDA-Public Use
  Company Number: US-TEVA-411174USA

PATIENT
  Age: 28 Year
  Sex: Female
  Weight: 82.17 kg

DRUGS (4)
  1. PARAGARD 380A [Suspect]
     Indication: CONTRACEPTION
     Route: 015
     Dates: end: 20130422
  2. PARAGARD 380A [Suspect]
     Route: 015
     Dates: start: 20130129, end: 20130422
  3. AXERT [Concomitant]
     Indication: HYPERSENSITIVITY
  4. ZOLOFT [Concomitant]
     Indication: ANXIETY
     Dosage: 100 MILLIGRAM DAILY;

REACTIONS (2)
  - Device expulsion [Recovered/Resolved]
  - Discomfort [Recovered/Resolved]
